FAERS Safety Report 9914680 (Version 2)
Quarter: 2014Q1

REPORT INFORMATION
  Report Type: Spontaneous
  Country: IT (occurrence: IT)
  Receive Date: 20140220
  Receipt Date: 20140220
  Transmission Date: 20141002
  Serious: Yes (Hospitalization)
  Sender: FDA-Public Use
  Company Number: PHHY2014IT013145

PATIENT
  Age: 50 Year
  Sex: Male

DRUGS (2)
  1. DICLOFENAC [Suspect]
     Indication: MUSCULOSKELETAL PAIN
     Dosage: 1 DF, QD
     Route: 048
     Dates: start: 20131116, end: 20131120
  2. TARGIN [Concomitant]
     Indication: MUSCULOSKELETAL PAIN
     Dosage: 1 DF, QD
     Route: 048
     Dates: start: 20131116, end: 20131120

REACTIONS (7)
  - Gastric disorder [Recovered/Resolved]
  - Hiatus hernia [Unknown]
  - Gastric ulcer [Unknown]
  - Abdominal pain upper [Recovered/Resolved]
  - Dyspepsia [Recovered/Resolved]
  - Nausea [Recovered/Resolved]
  - Decreased appetite [Recovered/Resolved]
